FAERS Safety Report 21233632 (Version 14)
Quarter: 2023Q1

REPORT INFORMATION
  Report Type: Report from Study
  Country: US (occurrence: US)
  Receive Date: 20220819
  Receipt Date: 20230330
  Transmission Date: 20230418
  Serious: Yes (Hospitalization, Other)
  Sender: FDA-Public Use
  Company Number: US-HORIZON THERAPEUTICS-HZN-2022-006272

PATIENT

DRUGS (4)
  1. KRYSTEXXA [Suspect]
     Active Substance: PEGLOTICASE
     Indication: Product used for unknown indication
     Dosage: 8 MG/ML, EVERY 2 WEEKS (1ST INFUSION)
     Route: 042
     Dates: start: 20220719
  2. KRYSTEXXA [Suspect]
     Active Substance: PEGLOTICASE
     Dosage: 8 MG/ML, EVERY 2 WEEKS (6TH INFUSION)
     Route: 042
     Dates: start: 2022
  3. METHOTREXATE [Concomitant]
     Active Substance: METHOTREXATE
     Indication: Product used for unknown indication
     Dosage: 15MG ONCE A WEEK
     Route: 065
  4. FOLIC ACID [Concomitant]
     Active Substance: FOLIC ACID
     Dosage: 1 MG, QD

REACTIONS (14)
  - Cellulitis [Unknown]
  - Deep vein thrombosis [Unknown]
  - Atrial fibrillation [Unknown]
  - Gout [Unknown]
  - Benign prostatic hyperplasia [Unknown]
  - Gait disturbance [Unknown]
  - Pain in extremity [Recovered/Resolved]
  - Arthralgia [Recovering/Resolving]
  - Rheumatoid arthritis [Unknown]
  - Circumstance or information capable of leading to medication error [Unknown]
  - Urinary retention [Unknown]
  - Ill-defined disorder [Unknown]
  - Inappropriate schedule of product administration [Unknown]
  - Calculus bladder [Unknown]

NARRATIVE: CASE EVENT DATE: 20220101
